FAERS Safety Report 4728145-7 (Version None)
Quarter: 2005Q3

REPORT INFORMATION
  Report Type: 
  Country: None (occurrence: None)
  Receive Date: 20050727
  Receipt Date: 20050715
  Transmission Date: 20060218
  Serious: Yes (Other)
  Sender: FDA-Public Use
  Company Number: 216115

PATIENT
  Age: 78 Year
  Sex: Male
  Weight: 46 kg

DRUGS (12)
  1. RITUXAN [Suspect]
     Indication: NON-HODGKIN'S LYMPHOMA
     Dosage: 520 MG,  INTRAVENOUS
     Route: 017
     Dates: start: 20040728, end: 20050112
  2. THERARUBICIN                       (PIRARUBICIN) [Suspect]
     Indication: NON-HODGKIN'S LYMPHOMA
     Dosage: 40 MG, INTRAVENOUS
     Route: 042
     Dates: start: 20040730, end: 20050114
  3. CYCLOPHOSPHAMIDE [Suspect]
     Indication: NON-HODGKIN'S LYMPHOMA
     Dosage: 650 MG, INTRAVENOUS
     Route: 042
     Dates: start: 20040730, end: 20050114
  4. ONCOVIN [Suspect]
     Indication: NON-HODGKIN'S LYMPHOMA
     Dosage: 1.3 MG,  INTRAVENOUS
     Route: 042
     Dates: start: 20040730, end: 20050114
  5. PREDNISONE [Suspect]
     Indication: NON-HODGKIN'S LYMPHOMA
     Dosage: 100 MG, ORAL
     Route: 048
     Dates: start: 20040730, end: 20050114
  6. CELESTAMINE   (DEXCHLORPHENIRAMINE MALEATE, BETAMETHASONE) [Concomitant]
  7. PYRINAZIN              (ACETAMINOPHEN) [Concomitant]
  8. FUNGIZONE [Concomitant]
  9. SELBEX               (TEPRENONE) [Concomitant]
  10. FERROMIA                              (SODIUM FERROUS CITRATE) [Concomitant]
  11. BLOPRESS                (CANDESARTAN CILEXETIL) [Concomitant]
  12. COTRIM [Concomitant]

REACTIONS (3)
  - CONSTIPATION [None]
  - NEUTROPHIL PERCENTAGE INCREASED [None]
  - PANCYTOPENIA [None]
